FAERS Safety Report 5839914-4 (Version None)
Quarter: 2008Q3

REPORT INFORMATION
  Report Type: 
  Country: None (occurrence: None)
  Receive Date: 20080811
  Receipt Date: 20080731
  Transmission Date: 20090109
  Serious: Yes (Other)
  Sender: FDA-Public Use
  Company Number: GB-JNJFOC-20080800592

PATIENT
  Age: 64 Year
  Sex: Female
  Weight: 86 kg

DRUGS (9)
  1. REMICADE [Suspect]
     Indication: RHEUMATOID ARTHRITIS
     Route: 042
  2. METHOTREXATE [Concomitant]
  3. PREDNISOLONE [Concomitant]
  4. ATENOLOL [Concomitant]
  5. BENDROFLUAZIDE [Concomitant]
  6. FOLIC ACID [Concomitant]
  7. HORMONE REPLACEMENT THERAPY [Concomitant]
  8. KETOPROFEN [Concomitant]
  9. RAMIPRIL [Concomitant]

REACTIONS (2)
  - ACTINIC KERATOSIS [None]
  - BOWEN'S DISEASE [None]
